FAERS Safety Report 10921095 (Version 1)
Quarter: 2015Q1

REPORT INFORMATION
  Report Type: Spontaneous
  Country: US (occurrence: None)
  Receive Date: 20150313
  Receipt Date: 20150313
  Transmission Date: 20150721
  Serious: Yes (Other)
  Sender: FDA-Public Use
  Company Number: None

PATIENT
  Age: 4 Month
  Sex: Male
  Weight: 32.5 kg

DRUGS (52)
  1. CETIRIZINE [Concomitant]
     Active Substance: CETIRIZINE HYDROCHLORIDE
  2. DIAZEPAM. [Concomitant]
     Active Substance: DIAZEPAM
  3. HYDRALAZINE [Concomitant]
     Active Substance: HYDRALAZINE HYDROCHLORIDE
  4. ISRADIPINE. [Concomitant]
     Active Substance: ISRADIPINE
  5. OXYCODONE [Concomitant]
     Active Substance: OXYCODONE
  6. CALCIUM CHLORIDE 20MG/ML [Suspect]
     Active Substance: CALCIUM CHLORIDE
     Indication: HYPOCALCAEMIA
     Dosage: CALCIUM CHLORIDE 20MG/ML, CONTINUOUS INFUSION, INTRAVENOUSLY (PERIPHERAL)?
     Route: 042
     Dates: start: 20141114, end: 20141126
  7. FOSAPREPITANT [Concomitant]
     Active Substance: FOSAPREPITANT
  8. KETAMINE [Concomitant]
     Active Substance: KETAMINE
  9. METHYLPREDNISOLONE. [Concomitant]
     Active Substance: METHYLPREDNISOLONE
  10. PAPAVERINE [Concomitant]
     Active Substance: PAPAVERINE
  11. SULFAMETHOXIZOLE/TRIMETHOPRIM [Concomitant]
  12. TOCILIRUMAB [Concomitant]
  13. CHLOROTHIAZIDE. [Concomitant]
     Active Substance: CHLOROTHIAZIDE
  14. EPINEPHRINE. [Concomitant]
     Active Substance: EPINEPHRINE
  15. FENTANYL. [Concomitant]
     Active Substance: FENTANYL
  16. HYDROMORPHONE [Concomitant]
     Active Substance: HYDROMORPHONE
  17. PENTAMIDINE [Concomitant]
     Active Substance: PENTAMIDINE
  18. PROMETHAZINE [Concomitant]
     Active Substance: PROMETHAZINE\PROMETHAZINE HYDROCHLORIDE
  19. CISATRICURIUM [Concomitant]
  20. HEPARIN [Concomitant]
     Active Substance: HEPARIN SODIUM
  21. MIDAZOLAM [Concomitant]
     Active Substance: MIDAZOLAM\MIDAZOLAM HYDROCHLORIDE
  22. PANTOPRAZOLE [Concomitant]
     Active Substance: PANTOPRAZOLE SODIUM
  23. PARENTERAL NUTRITION [Concomitant]
     Active Substance: AMINO ACIDS\DEXTROSE\ELECTROLYTES NOS
  24. DEXMEDETOMIDINE [Concomitant]
     Active Substance: DEXMEDETOMIDINE
  25. FAMOTIDINE. [Concomitant]
     Active Substance: FAMOTIDINE
  26. LORAZEPAM. [Concomitant]
     Active Substance: LORAZEPAM
  27. MAGNESIUM SULFATE. [Concomitant]
     Active Substance: MAGNESIUM SULFATE
  28. RASBURICASE [Concomitant]
     Active Substance: RASBURICASE
  29. VANCOMYCIN [Concomitant]
     Active Substance: VANCOMYCIN
  30. ALBUTEROL. [Concomitant]
     Active Substance: ALBUTEROL
  31. ATROPINE [Concomitant]
     Active Substance: ATROPINE
  32. CEFEPIME [Concomitant]
     Active Substance: CEFEPIME\CEFEPIME HYDROCHLORIDE
  33. FUROSEMIDE. [Concomitant]
     Active Substance: FUROSEMIDE
  34. GRANISETRON [Concomitant]
     Active Substance: GRANISETRON
  35. MICAFUNGIN [Concomitant]
     Active Substance: MICAFUNGIN
  36. NOREPINEPHRINE [Concomitant]
     Active Substance: NOREPINEPHRINE\NOREPINEPHRINE BITARTRATE
  37. POTASSIUM [Concomitant]
     Active Substance: POTASSIUM
  38. URSODIOL. [Concomitant]
     Active Substance: URSODIOL
  39. ACETAMINOPHEN. [Concomitant]
     Active Substance: ACETAMINOPHEN
  40. CLONIDINE. [Concomitant]
     Active Substance: CLONIDINE
  41. OMEPRAZOLE. [Concomitant]
     Active Substance: OMEPRAZOLE
  42. POLYETHYLENE GLYCOL [Concomitant]
     Active Substance: POLYETHYLENE GLYCOLS
  43. RANITIDINE [Concomitant]
     Active Substance: RANITIDINE\RANITIDINE HYDROCHLORIDE
  44. ROCURONIUM [Concomitant]
     Active Substance: ROCURONIUM BROMIDE
  45. TOBRAMYCIN. [Concomitant]
     Active Substance: TOBRAMYCIN
  46. ALBUMIN [Concomitant]
     Active Substance: ALBUMIN (HUMAN)
  47. DIPHENHYDRAMINE [Concomitant]
     Active Substance: DIPHENHYDRAMINE
  48. DOCUSATE [Concomitant]
     Active Substance: DOCUSATE
  49. ETANERCEPT [Concomitant]
     Active Substance: ETANERCEPT
  50. MELATIONIN [Concomitant]
  51. ONDANSETRON [Concomitant]
     Active Substance: ONDANSETRON
  52. THROMBIN [Concomitant]
     Active Substance: THROMBIN

REACTIONS (3)
  - Infusion site swelling [None]
  - Extravasation [None]
  - Infusion site pain [None]

NARRATIVE: CASE EVENT DATE: 20141121
